FAERS Safety Report 21629363 (Version 1)
Quarter: 2022Q4

REPORT INFORMATION
  Report Type: Spontaneous
  Country: CA (occurrence: None)
  Receive Date: 20221122
  Receipt Date: 20221122
  Transmission Date: 20230113
  Serious: Yes (Hospitalization, Other)
  Sender: FDA-Public Use
  Company Number: 2020SE02957

PATIENT
  Age: 44 Year
  Sex: Male

DRUGS (21)
  1. SYMBICORT [Suspect]
     Active Substance: BUDESONIDE\FORMOTEROL FUMARATE DIHYDRATE
     Indication: Product used for unknown indication
     Dosage: THREE EVERY ONE DAY
     Route: 055
  2. SYMBICORT [Suspect]
     Active Substance: BUDESONIDE\FORMOTEROL FUMARATE DIHYDRATE
     Indication: Product used for unknown indication
     Dosage: 2 PUFF(S), TWO TIMES A DAY
     Route: 055
  3. ATIVAN [Suspect]
     Active Substance: LORAZEPAM
     Indication: Product used for unknown indication
     Route: 065
  4. CETIRIZINE [Suspect]
     Active Substance: CETIRIZINE HYDROCHLORIDE
     Indication: Product used for unknown indication
     Route: 065
  5. CITALOPRAM [Suspect]
     Active Substance: CITALOPRAM HYDROBROMIDE
     Indication: Product used for unknown indication
     Route: 065
  6. MEPOLIZUMAB [Suspect]
     Active Substance: MEPOLIZUMAB
     Indication: Asthma
     Route: 042
     Dates: start: 20180418
  7. MEPOLIZUMAB [Suspect]
     Active Substance: MEPOLIZUMAB
     Indication: Product used for unknown indication
     Route: 042
     Dates: start: 20180418
  8. NUCALA [Suspect]
     Active Substance: MEPOLIZUMAB
     Indication: Asthma
     Dosage: 100.0MG UNKNOWN
     Route: 042
     Dates: start: 20190418
  9. PREDNISONE [Suspect]
     Active Substance: PREDNISONE
     Indication: Asthma
     Dosage: 40 MG, QD
     Route: 065
  10. PREDNISONE [Suspect]
     Active Substance: PREDNISONE
     Indication: Product used for unknown indication
     Dosage: 40 MG, QD
     Route: 065
  11. RABEPRAZOLE [Suspect]
     Active Substance: RABEPRAZOLE
     Indication: Product used for unknown indication
     Dosage: UNK
     Route: 065
  12. CETIRIZINE HYDROCHLORIDE [Suspect]
     Active Substance: CETIRIZINE HYDROCHLORIDE
     Indication: Product used for unknown indication
     Dosage: UNK
     Route: 065
  13. ALBUTEROL SULFATE [Suspect]
     Active Substance: ALBUTEROL SULFATE
     Indication: Asthma
     Route: 065
  14. ALBUTEROL SULFATE [Suspect]
     Active Substance: ALBUTEROL SULFATE
     Indication: Asthma
     Route: 065
  15. SPORANOX [Suspect]
     Active Substance: ITRACONAZOLE
     Indication: Product used for unknown indication
     Route: 065
  16. SPORANOX [Suspect]
     Active Substance: ITRACONAZOLE
     Indication: Product used for unknown indication
     Route: 065
  17. SPORANOX [Suspect]
     Active Substance: ITRACONAZOLE
     Indication: Product used for unknown indication
     Route: 065
  18. SPORANOX [Suspect]
     Active Substance: ITRACONAZOLE
     Indication: Product used for unknown indication
     Route: 065
  19. SPORANOX [Suspect]
     Active Substance: ITRACONAZOLE
     Indication: Product used for unknown indication
     Route: 065
  20. VENTOLIN [Suspect]
     Active Substance: ALBUTEROL SULFATE
     Indication: Product used for unknown indication
     Dosage: UNK UNK, PRN, 1 TO 2 PUFF
     Route: 065
  21. AZITHROMYCIN [Concomitant]
     Active Substance: AZITHROMYCIN
     Indication: Product used for unknown indication
     Route: 065

REACTIONS (34)
  - Bronchial disorder [Unknown]
  - Bronchopulmonary aspergillosis allergic [Unknown]
  - Chest discomfort [Recovering/Resolving]
  - Chest pain [Unknown]
  - Folliculitis [Unknown]
  - Forced expiratory volume decreased [Unknown]
  - Haemoptysis [Unknown]
  - Hyperventilation [Unknown]
  - Lung disorder [Unknown]
  - Lymphadenopathy [Unknown]
  - Mycobacterial infection [Unknown]
  - Parathyroid gland enlargement [Unknown]
  - Secretion discharge [Unknown]
  - Sinusitis [Unknown]
  - Upper respiratory tract infection [Unknown]
  - Tendon disorder [Unknown]
  - Sinus congestion [Unknown]
  - Respiratory disorder [Unknown]
  - Obstructive airways disorder [Unknown]
  - Condition aggravated [Unknown]
  - Bronchiectasis [Unknown]
  - Full blood count abnormal [Unknown]
  - Weight increased [Unknown]
  - Asthma [Unknown]
  - Dyspnoea [Unknown]
  - Sleep disorder due to a general medical condition [Unknown]
  - Wheezing [Unknown]
  - Loss of personal independence in daily activities [Unknown]
  - Therapeutic product effect incomplete [Unknown]
  - Hospitalisation [Unknown]
  - Upper respiratory fungal infection [Unknown]
  - Rash [Unknown]
  - Cough [Unknown]
  - Anxiety [Unknown]
